FAERS Safety Report 25664959 (Version 1)
Quarter: 2025Q3

REPORT INFORMATION
  Report Type: Spontaneous
  Country: US (occurrence: None)
  Receive Date: 20250809
  Receipt Date: 20250809
  Transmission Date: 20251020
  Serious: Yes (Hospitalization, Disabling)
  Sender: FDA-CTU
  Company Number: None

PATIENT
  Age: 29 Year
  Sex: Male
  Weight: 213.75 kg

DRUGS (8)
  1. DEPAKOTE [Suspect]
     Active Substance: DIVALPROEX SODIUM
  2. RISPERDAL [Suspect]
     Active Substance: RISPERIDONE
  3. HALDOL [Suspect]
     Active Substance: HALOPERIDOL
  4. HYDROCODONE [Suspect]
     Active Substance: HYDROCODONE
  5. MORPHINE [Suspect]
     Active Substance: MORPHINE
  6. IBUPROFEN [Suspect]
     Active Substance: IBUPROFEN
  7. XANAX [Suspect]
     Active Substance: ALPRAZOLAM
  8. ATIVAN [Suspect]
     Active Substance: LORAZEPAM

REACTIONS (4)
  - Weight increased [None]
  - Headache [None]
  - Gynaecomastia [None]
  - Migraine [None]
